FAERS Safety Report 6739668-3 (Version None)
Quarter: 2010Q2

REPORT INFORMATION
  Report Type: 
  Country: None (occurrence: None)
  Receive Date: 20100525
  Receipt Date: 20100423
  Transmission Date: 20101027
  Serious: No
  Sender: FDA-Public Use
  Company Number: US-AMGEN-KDL392047

PATIENT
  Sex: Female
  Weight: 138.9 kg

DRUGS (11)
  1. NPLATE [Suspect]
     Indication: IDIOPATHIC THROMBOCYTOPENIC PURPURA
     Route: 042
     Dates: start: 20090507, end: 20090730
  2. NPLATE [Suspect]
     Route: 042
     Dates: start: 20090806, end: 20090813
  3. NPLATE [Suspect]
     Route: 042
     Dates: start: 20090820, end: 20090910
  4. NPLATE [Suspect]
     Route: 042
     Dates: start: 20090917, end: 20090930
  5. NPLATE [Suspect]
     Dates: start: 20100317
  6. HYDROCHLOROTHIAZIDE [Concomitant]
  7. INSULIN [Concomitant]
  8. LEVOTHYROXINE SODIUM [Concomitant]
  9. VALSARTAN [Concomitant]
  10. EFFEXOR [Concomitant]
  11. GLYBURIDE AND METFORMIN HYDROCHLORIDE [Concomitant]

REACTIONS (2)
  - DYSGEUSIA [None]
  - HYPOGEUSIA [None]
